FAERS Safety Report 26112178 (Version 1)
Quarter: 2025Q4

REPORT INFORMATION
  Report Type: Spontaneous
  Country: US (occurrence: None)
  Receive Date: 20251201
  Receipt Date: 20251201
  Transmission Date: 20260118
  Serious: Yes (Hospitalization)
  Sender: FDA-CTU
  Company Number: None

PATIENT
  Age: 70 Year
  Sex: Female

DRUGS (1)
  1. KISQALI [Suspect]
     Active Substance: RIBOCICLIB SUCCINATE
     Indication: Breast cancer female
     Dosage: 400MG QD

REACTIONS (9)
  - Arthralgia [None]
  - Asthenia [None]
  - Diverticulitis [None]
  - Fall [None]
  - Cyst rupture [None]
  - Nausea [None]
  - Therapy interrupted [None]
  - Volvulus [None]
  - Balance disorder [None]
